FAERS Safety Report 25662233 (Version 1)
Quarter: 2025Q3

REPORT INFORMATION
  Report Type: Spontaneous
  Country: EU (occurrence: EU)
  Receive Date: 20250810
  Receipt Date: 20250810
  Transmission Date: 20251021
  Serious: Yes (Life-Threatening, Hospitalization)
  Sender: TEVA
  Company Number: None

PATIENT
  Age: 69 Year
  Sex: Female

DRUGS (2)
  1. CAPECITABINE [Suspect]
     Active Substance: CAPECITABINE
     Indication: Neuroendocrine tumour of the lung metastatic
     Dosage: 750 MG/M2 EVERY 12 HOURS = 1300 MG P.O. EVERY 12 HOURS D1-14: 120 TABLETS
     Route: 048
     Dates: start: 20250610, end: 20250623
  2. TEMOZOLOMIDE [Suspect]
     Active Substance: TEMOZOLOMIDE
     Indication: Neuroendocrine tumour of the lung metastatic
     Dosage: 200MG/M2 D10-14 EVERY 28 DAYS
     Route: 048
     Dates: start: 20250619, end: 20250623

REACTIONS (3)
  - Pancytopenia [Recovering/Resolving]
  - Subarachnoid haemorrhage [Recovering/Resolving]
  - Agranulocytosis [Recovered/Resolved]

NARRATIVE: CASE EVENT DATE: 20250701
